FAERS Safety Report 26024619 (Version 2)
Quarter: 2025Q4

REPORT INFORMATION
  Report Type: Report from Study
  Country: US (occurrence: US)
  Receive Date: 20251111
  Receipt Date: 20251128
  Transmission Date: 20260118
  Serious: Yes (Other)
  Sender: ROCHE
  Company Number: US-ROCHE-10000087245

PATIENT
  Age: 72 Year
  Sex: Female

DRUGS (4)
  1. XOLAIR PFS [Suspect]
     Active Substance: OMALIZUMAB
     Indication: Chronic spontaneous urticaria
     Dosage: LAST INJECTION DATE: 29/MAR/2022?INJECT THE CONTENTS OF 1 DEVICE UNDER THE SKIN EVERY 4 WEEKS
     Route: 058
     Dates: start: 2021
  2. XOLAIR PFS [Suspect]
     Active Substance: OMALIZUMAB
  3. ZYRTEC [Concomitant]
     Active Substance: CETIRIZINE HYDROCHLORIDE
     Indication: Pruritus
  4. CALADRYL [Concomitant]
     Active Substance: CALAMINE\DIPHENHYDRAMINE HYDROCHLORIDE\FERRIC OXIDE RED\PRAMOXINE HYDROCHLORIDE\ZINC OXIDE

REACTIONS (9)
  - Pruritus [Not Recovered/Not Resolved]
  - Urticaria [Unknown]
  - Feeling hot [Unknown]
  - Hypertension [Unknown]
  - Diabetes mellitus [Unknown]
  - Pruritus [Unknown]
  - Urticaria [Unknown]
  - Nervous system disorder [Unknown]
  - Skin burning sensation [Unknown]

NARRATIVE: CASE EVENT DATE: 20240801
